FAERS Safety Report 18196766 (Version 1)
Quarter: 2020Q3

REPORT INFORMATION
  Report Type: Report from Study
  Country: US (occurrence: US)
  Receive Date: 20200826
  Receipt Date: 20200826
  Transmission Date: 20201103
  Serious: Yes (Hospitalization, Other)
  Sender: FDA-Public Use
  Company Number: US-VELOXIS PHARMACEUTICALS-2020VELUS-000755

PATIENT
  Age: 45 Year
  Sex: Male
  Weight: 64 kg

DRUGS (10)
  1. LABETALOL [Concomitant]
     Active Substance: LABETALOL\LABETALOL HYDROCHLORIDE
     Indication: RENAL TRANSPLANT
     Dosage: 600 MILLIGRAM, QD
     Route: 048
     Dates: start: 20200623
  2. VALCYTE [Concomitant]
     Active Substance: VALGANCICLOVIR HYDROCHLORIDE
     Indication: RENAL TRANSPLANT
     Dosage: 450 MILLIGRAM, QD
     Route: 048
     Dates: start: 20200623
  3. SENSIPAR [Concomitant]
     Active Substance: CINACALCET HYDROCHLORIDE
     Indication: RENAL TRANSPLANT
     Dosage: 30 MILLIGRAM, QD
     Route: 048
     Dates: start: 20200623
  4. PREDNISONE. [Suspect]
     Active Substance: PREDNISONE
     Indication: RENAL TRANSPLANT
     Dosage: 10 MILLIGRAM, QD
     Route: 048
     Dates: start: 20200623
  5. CLONIDINE. [Concomitant]
     Active Substance: CLONIDINE
     Indication: RENAL TRANSPLANT
     Dosage: 0.6 MILLIGRAM, QD
     Route: 048
     Dates: start: 20200623
  6. BACTRIM [Concomitant]
     Active Substance: SULFAMETHOXAZOLE\TRIMETHOPRIM
     Indication: RENAL TRANSPLANT
     Dosage: UNK, QD
     Route: 048
     Dates: start: 20200623
  7. CELLCEPT [Suspect]
     Active Substance: MYCOPHENOLATE MOFETIL\MYCOPHENOLATE MOFETIL HYDROCHLORIDE
     Indication: RENAL TRANSPLANT
     Dosage: 2 GRAM, QD
     Route: 048
     Dates: start: 20200623
  8. PANTOPRAZOLE [Concomitant]
     Active Substance: PANTOPRAZOLE
     Indication: RENAL TRANSPLANT
     Dosage: 80 MILLIGRAM, QD
     Route: 048
     Dates: start: 20200623
  9. ENVARSUS XR [Suspect]
     Active Substance: TACROLIMUS
     Indication: PROPHYLAXIS AGAINST TRANSPLANT REJECTION
     Dosage: UNK
     Route: 048
     Dates: start: 20200808
  10. MAGNESIUM OXIDE. [Concomitant]
     Active Substance: MAGNESIUM OXIDE
     Indication: RENAL TRANSPLANT
     Dosage: 800 MILLIGRAM, QD
     Route: 048
     Dates: start: 20200623

REACTIONS (4)
  - Urinary retention [Not Recovered/Not Resolved]
  - Constipation [Not Recovered/Not Resolved]
  - Decreased appetite [Not Recovered/Not Resolved]
  - Acute kidney injury [Not Recovered/Not Resolved]

NARRATIVE: CASE EVENT DATE: 20200811
